FAERS Safety Report 9001944 (Version 1)
Quarter: 2013Q1

REPORT INFORMATION
  Report Type: Spontaneous
  Country: US (occurrence: US)
  Receive Date: 20130108
  Receipt Date: 20130108
  Transmission Date: 20140127
  Serious: No
  Sender: FDA-Public Use
  Company Number: US-009507513-1301USA000493

PATIENT
  Sex: Female

DRUGS (3)
  1. COZAAR [Suspect]
     Dosage: 50 MG, BID
     Route: 048
     Dates: start: 201209
  2. COZAAR [Suspect]
     Dosage: 50 MG, QD, AT NIGHT
     Route: 048
     Dates: start: 201209
  3. COZAAR [Suspect]
     Dosage: CUT IN HALF,25 MG IN THE MORNING AND 25 MG IN THE EVENING
     Route: 048
     Dates: start: 20121010, end: 20121018

REACTIONS (4)
  - Paraesthesia [Unknown]
  - Local swelling [Unknown]
  - Sleep disorder [Unknown]
  - Wrong technique in drug usage process [Unknown]
